FAERS Safety Report 8805514 (Version 2)
Quarter: 2015Q1

REPORT INFORMATION
  Report Type: Report from Study
  Country: US (occurrence: US)
  Receive Date: 20120924
  Receipt Date: 20150312
  Transmission Date: 20150721
  Serious: Yes (Death)
  Sender: FDA-Public Use
  Company Number: US-ROCHE-1123442

PATIENT
  Sex: Male

DRUGS (13)
  1. ATROPINE [Concomitant]
     Active Substance: ATROPINE
     Route: 065
  2. NEXIUM [Concomitant]
     Active Substance: ESOMEPRAZOLE MAGNESIUM
  3. PERCOCET [Concomitant]
     Active Substance: ACETAMINOPHEN\OXYCODONE HYDROCHLORIDE
  4. AVASTIN [Suspect]
     Active Substance: BEVACIZUMAB
     Indication: GASTRIC CANCER
     Route: 042
     Dates: start: 20070221
  5. EFFEXOR [Concomitant]
     Active Substance: VENLAFAXINE HYDROCHLORIDE
  6. DEXAMETHASONE. [Concomitant]
     Active Substance: DEXAMETHASONE
     Route: 065
  7. CISPLATIN. [Concomitant]
     Active Substance: CISPLATIN
     Route: 065
  8. TAXOTERE [Concomitant]
     Active Substance: DOCETAXEL
     Route: 065
  9. CAMPTOSAR [Concomitant]
     Active Substance: IRINOTECAN HYDROCHLORIDE
     Route: 065
  10. LORTAB (UNITED STATES) [Concomitant]
  11. OXYCONTIN [Concomitant]
     Active Substance: OXYCODONE HYDROCHLORIDE
  12. 5-FLUOROURACIL [Concomitant]
     Active Substance: FLUOROURACIL
     Route: 065
  13. ALOXI [Concomitant]
     Active Substance: PALONOSETRON HYDROCHLORIDE
     Route: 065

REACTIONS (14)
  - Constipation [Unknown]
  - Metastases to bone [Unknown]
  - Abdominal pain [Unknown]
  - Therapeutic response decreased [Unknown]
  - Fatigue [Unknown]
  - Back pain [Unknown]
  - Dry mouth [Unknown]
  - Off label use [Unknown]
  - Diarrhoea [Unknown]
  - Insomnia [Unknown]
  - Death [Fatal]
  - Nausea [Unknown]
  - Malaise [Unknown]
  - Depression [Unknown]
